FAERS Safety Report 7083678-6 (Version None)
Quarter: 2010Q4

REPORT INFORMATION
  Report Type: 
  Country: None (occurrence: None)
  Receive Date: 20101104
  Receipt Date: 20101026
  Transmission Date: 20110411
  Serious: Yes (Hospitalization)
  Sender: FDA-Public Use
  Company Number: US-GENZYME-CERZ-1001638

PATIENT

DRUGS (3)
  1. CEREZYME [Suspect]
     Indication: GAUCHER'S DISEASE
     Route: 042
  2. WARFARIN [Concomitant]
     Route: 065
  3. ZAVESCA [Concomitant]
     Indication: GAUCHER'S DISEASE
     Route: 065

REACTIONS (3)
  - FALL [None]
  - FOOT FRACTURE [None]
  - PULMONARY THROMBOSIS [None]
